FAERS Safety Report 14557142 (Version 2)
Quarter: 2018Q2

REPORT INFORMATION
  Report Type: Spontaneous
  Country: US (occurrence: US)
  Receive Date: 20180221
  Receipt Date: 20180503
  Transmission Date: 20180711
  Serious: No
  Sender: FDA-Public Use
  Company Number: US-PFIZER INC-2018069196

PATIENT
  Age: 6 Year
  Sex: Female

DRUGS (1)
  1. GENOTROPIN [Suspect]
     Active Substance: SOMATROPIN
     Indication: HYPOTONIA
     Dosage: 5 UNITS BY INJECTION EVERY OTHER DAY OR EVERY 2 DAYS; SHE NEVER GOES MORE THAN 2 DAYS WITHOUT MED

REACTIONS (8)
  - Therapeutic response unexpected [Unknown]
  - Pre-existing condition improved [Unknown]
  - Fatigue [Unknown]
  - Incorrect dose administered [Unknown]
  - Product preparation error [Unknown]
  - Product use in unapproved indication [Unknown]
  - Intentional product misuse [Unknown]
  - Wrong technique in product usage process [Unknown]

NARRATIVE: CASE EVENT DATE: 201708
